FAERS Safety Report 7968190-1 (Version None)
Quarter: 2011Q4

REPORT INFORMATION
  Report Type: 
  Country: None (occurrence: None)
  Receive Date: 20111209
  Receipt Date: 20111205
  Transmission Date: 20120403
  Serious: Yes (Other)
  Sender: FDA-Public Use
  Company Number: PHEH2011US06060

PATIENT
  Age: 24 Year
  Sex: Female

DRUGS (3)
  1. NEXIUM [Concomitant]
     Dosage: 20 MG, QD
  2. ZEGERID [Concomitant]
     Dosage: 20 MG, QD
  3. GILENYA [Suspect]
     Indication: MULTIPLE SCLEROSIS
     Dosage: 1 DF, QD
     Route: 048
     Dates: start: 20110715, end: 20110818

REACTIONS (5)
  - BLINDNESS UNILATERAL [None]
  - VISUAL ACUITY REDUCED [None]
  - OPTIC NEURITIS [None]
  - VISION BLURRED [None]
  - HEADACHE [None]
